FAERS Safety Report 20451628 (Version 1)
Quarter: 2022Q1

REPORT INFORMATION
  Report Type: Spontaneous
  Country: US (occurrence: US)
  Receive Date: 20220209
  Receipt Date: 20220209
  Transmission Date: 20220423
  Serious: No
  Sender: FDA-Public Use
  Company Number: US-NOVARTISTESTPH-NVSC2021US072782

PATIENT

DRUGS (2)
  1. PATADAY [Suspect]
     Active Substance: OLOPATADINE HYDROCHLORIDE
     Indication: Product used for unknown indication
     Dosage: UNK UNK, QD
     Route: 065
  2. PATADAY [Suspect]
     Active Substance: OLOPATADINE HYDROCHLORIDE
     Dosage: UNK, BID
     Route: 065

REACTIONS (4)
  - Conjunctivitis [Recovering/Resolving]
  - Hypersensitivity [Unknown]
  - Eye irritation [Recovering/Resolving]
  - Drug ineffective [Unknown]
